FAERS Safety Report 11143946 (Version 1)
Quarter: 2015Q2

REPORT INFORMATION
  Report Type: Report from Study
  Country: US (occurrence: US)
  Receive Date: 20150526
  Receipt Date: 20150526
  Transmission Date: 20150821
  Serious: Yes (Other)
  Sender: FDA-Public Use
  Company Number: US-ROCHE-1581122

PATIENT
  Sex: Male
  Weight: 62.65 kg

DRUGS (1)
  1. NUTROPIN AQ [Suspect]
     Active Substance: SOMATROPIN
     Indication: DWARFISM
     Dosage: NIGHTLY
     Route: 058

REACTIONS (3)
  - Growth retardation [Unknown]
  - Cognitive disorder [Unknown]
  - Strabismus [Recovered/Resolved]

NARRATIVE: CASE EVENT DATE: 2013
